FAERS Safety Report 9537924 (Version 1)
Quarter: 2013Q3

REPORT INFORMATION
  Report Type: Spontaneous
  Country: US (occurrence: US)
  Receive Date: 20130919
  Receipt Date: 20130919
  Transmission Date: 20140515
  Serious: Yes (Death, Other)
  Sender: FDA-Public Use
  Company Number: PHHY2013US103565

PATIENT
  Age: 56 Year
  Sex: Female

DRUGS (2)
  1. WARFARIN SODIUM [Suspect]
     Indication: PULMONARY EMBOLISM
  2. WARFARIN SODIUM [Suspect]
     Indication: DEEP VEIN THROMBOSIS

REACTIONS (12)
  - Death [Fatal]
  - Calciphylaxis [Unknown]
  - Vascular calcification [Unknown]
  - Sepsis [Unknown]
  - Pyrexia [Unknown]
  - Leukocytosis [Unknown]
  - Eschar [Unknown]
  - Skin necrosis [Unknown]
  - Blister [Unknown]
  - Livedo reticularis [Unknown]
  - Skin lesion [Unknown]
  - Protein C decreased [Unknown]
